FAERS Safety Report 9814833 (Version 1)
Quarter: 2014Q1

REPORT INFORMATION
  Report Type: Spontaneous
  Country: US (occurrence: US)
  Receive Date: 20140113
  Receipt Date: 20140113
  Transmission Date: 20141002
  Serious: Yes (Hospitalization)
  Sender: FDA-Public Use
  Company Number: US-GLAXOSMITHKLINE-A1055580A

PATIENT
  Age: 65 Year
  Sex: Male

DRUGS (4)
  1. ADVAIR [Suspect]
     Indication: ASTHMA
     Dosage: 1PUFF TWICE PER DAY
     Route: 055
     Dates: start: 2004
  2. ACCOLATE [Concomitant]
  3. FLOVENT [Concomitant]
  4. VENTOLIN [Concomitant]

REACTIONS (2)
  - Cardiac operation [Unknown]
  - Dyspnoea [Unknown]
